FAERS Safety Report 15098051 (Version 2)
Quarter: 2018Q3

REPORT INFORMATION
  Report Type: Spontaneous
  Country: US (occurrence: US)
  Receive Date: 20180702
  Receipt Date: 20180920
  Transmission Date: 20181010
  Serious: No
  Sender: FDA-Public Use
  Company Number: US-IGSA-SR10006317

PATIENT
  Age: 14 Year
  Sex: Female
  Weight: 69.5 kg

DRUGS (16)
  1. XOPENEX [Concomitant]
     Active Substance: LEVALBUTEROL HYDROCHLORIDE
  2. AMITIZA [Concomitant]
     Active Substance: LUBIPROSTONE
  3. MOBIC [Concomitant]
     Active Substance: MELOXICAM
  4. SPIRIVA [Concomitant]
     Active Substance: TIOTROPIUM BROMIDE MONOHYDRATE
  5. GAMUNEX?C [Suspect]
     Active Substance: HUMAN IMMUNOGLOBULIN G
     Dosage: UNK
     Dates: start: 20180315, end: 20180315
  6. NUCALA [Concomitant]
     Active Substance: MEPOLIZUMAB
  7. STEROIDS [Concomitant]
     Active Substance: UNSPECIFIED INGREDIENT
     Indication: PREMEDICATION
     Dosage: UNK
     Route: 042
     Dates: start: 20180315, end: 20180315
  8. GAMUNEX?C [Suspect]
     Active Substance: HUMAN IMMUNOGLOBULIN G
     Indication: IMMUNODEFICIENCY COMMON VARIABLE
     Dosage: 30 G, UNK
     Dates: start: 20180315, end: 20180315
  9. BENADRYL [Concomitant]
     Active Substance: DIPHENHYDRAMINE HYDROCHLORIDE
     Indication: PREMEDICATION
     Dosage: UNK
     Route: 042
     Dates: start: 20180315, end: 20180315
  10. ALVESCO [Concomitant]
     Active Substance: CICLESONIDE
  11. NEXIUM [Concomitant]
     Active Substance: ESOMEPRAZOLE MAGNESIUM
  12. CLARITIN [Concomitant]
     Active Substance: LORATADINE
  13. TYLENOL [Concomitant]
     Active Substance: ACETAMINOPHEN
     Indication: PREMEDICATION
     Dosage: UNK
     Route: 048
     Dates: start: 20180315, end: 20180315
  14. NORMAL SALINE [Concomitant]
     Active Substance: SODIUM CHLORIDE
     Indication: PREMEDICATION
     Dosage: UNK
     Dates: start: 20180315, end: 20180315
  15. PULMICORT TURBUHALER [Concomitant]
     Active Substance: BUDESONIDE
  16. CROMOLYN                           /00082101/ [Concomitant]
     Active Substance: CROMOLYN

REACTIONS (1)
  - Headache [Recovered/Resolved]

NARRATIVE: CASE EVENT DATE: 20180315
